FAERS Safety Report 20832325 (Version 1)
Quarter: 2022Q2

REPORT INFORMATION
  Report Type: Report from Study
  Country: FR (occurrence: FR)
  Receive Date: 20220516
  Receipt Date: 20220516
  Transmission Date: 20220721
  Serious: Yes (Hospitalization)
  Sender: FDA-Public Use
  Company Number: FR-ALNYLAM PHARMACEUTICALS, INC.-ALN-2021-003585

PATIENT

DRUGS (1)
  1. ONPATTRO [Suspect]
     Active Substance: PATISIRAN SODIUM
     Indication: Product used for unknown indication
     Route: 065

REACTIONS (7)
  - Cardiac pacemaker insertion [Unknown]
  - Hypoaesthesia [Unknown]
  - Pre-existing condition improved [Unknown]
  - Pain in extremity [Unknown]
  - Diarrhoea [Unknown]
  - Feeling abnormal [Unknown]
  - Fatigue [Unknown]
